FAERS Safety Report 5115082-1 (Version None)
Quarter: 2006Q3

REPORT INFORMATION
  Report Type: 
  Country: None (occurrence: None)
  Receive Date: 20060926
  Receipt Date: 20060915
  Transmission Date: 20061208
  Serious: Yes (Other)
  Sender: FDA-Public Use
  Company Number: AU-BRISTOL-MYERS SQUIBB COMPANY-13517602

PATIENT

DRUGS (1)
  1. IFOSFAMIDE [Suspect]

REACTIONS (1)
  - ENCEPHALOPATHY [None]
